FAERS Safety Report 18233281 (Version 1)
Quarter: 2020Q3

REPORT INFORMATION
  Report Type: Spontaneous
  Country: US (occurrence: US)
  Receive Date: 20200904
  Receipt Date: 20200904
  Transmission Date: 20201103
  Serious: Yes (Death)
  Sender: FDA-Public Use
  Company Number: None

PATIENT
  Age: 62 Year
  Sex: Female
  Weight: 112 kg

DRUGS (10)
  1. LOVENOX [Concomitant]
     Active Substance: ENOXAPARIN SODIUM
  2. LEVOPHED [Concomitant]
     Active Substance: NOREPINEPHRINE BITARTRATE
  3. FENTANYL. [Concomitant]
     Active Substance: FENTANYL
  4. VANCOMYCIN [Concomitant]
     Active Substance: VANCOMYCIN
  5. VASOPRESSIN. [Concomitant]
     Active Substance: VASOPRESSIN
  6. DEXAMETHAXONE [Concomitant]
  7. CEFEPIME [Concomitant]
     Active Substance: CEFEPIME HYDROCHLORIDE
  8. REMDESIVIR. [Suspect]
     Active Substance: REMDESIVIR
     Indication: COVID-19 TREATMENT
  9. VERSED [Concomitant]
     Active Substance: MIDAZOLAM HYDROCHLORIDE
  10. DEXMEDETOMIDINE. [Concomitant]
     Active Substance: DEXMEDETOMIDINE

REACTIONS (9)
  - Embolic stroke [None]
  - Tracheomalacia [None]
  - Mechanical ventilation complication [None]
  - Escherichia infection [None]
  - Ischaemic stroke [None]
  - Cerebellar stroke [None]
  - Transfusion [None]
  - Urinary tract infection [None]
  - Pneumonia bacterial [None]

NARRATIVE: CASE EVENT DATE: 20200821
